FAERS Safety Report 6250263-5 (Version None)
Quarter: 2009Q2

REPORT INFORMATION
  Report Type: 
  Country: None (occurrence: None)
  Receive Date: 20090626
  Receipt Date: 20090626
  Transmission Date: 20091009
  Serious: No
  Sender: FDA-Public Use
  Company Number: None

PATIENT
  Age: 83 Year
  Sex: Female
  Weight: 77.1115 kg

DRUGS (1)
  1. TEVA TRANSDERMAL PAIN PATCHES 25MCG/HR AVEVA DRUG DELIVERY SYSTEMS [Suspect]
     Dosage: 25MCG/HR EVERY 72 HOURS TRANSDERMAL
     Route: 062
     Dates: start: 20090615, end: 20090621

REACTIONS (2)
  - MEDICATION ERROR [None]
  - PRODUCT QUALITY ISSUE [None]
